FAERS Safety Report 23785151 (Version 1)
Quarter: 2024Q2

REPORT INFORMATION
  Report Type: Spontaneous
  Country: US (occurrence: None)
  Receive Date: 20240425
  Receipt Date: 20240425
  Transmission Date: 20240716
  Serious: Yes (unspecified)
  Sender: FDA-Public Use
  Company Number: None

PATIENT
  Age: 53 Year
  Sex: Female
  Weight: 97.2 kg

DRUGS (10)
  1. NPLATE [Suspect]
     Active Substance: ROMIPLOSTIM
     Indication: Platelet count decreased
     Dosage: FREQUENCY : WEEKLY;?
     Route: 058
     Dates: start: 20231222, end: 20240301
  2. PROMACTA [Concomitant]
     Active Substance: ELTROMBOPAG OLAMINE
  3. HUMAN IMMUNOGLOBULIN G [Concomitant]
     Active Substance: HUMAN IMMUNOGLOBULIN G
  4. CELLCEPT [Concomitant]
     Active Substance: MYCOPHENOLATE MOFETIL
  5. CLARITIN-D NOS [Concomitant]
     Active Substance: LORATADINE\PSEUDOEPHEDRINE SULFATE
  6. COREG [Concomitant]
     Active Substance: CARVEDILOL
  7. PROGESTERONE [Concomitant]
     Active Substance: PROGESTERONE
  8. ELIQUIS [Concomitant]
     Active Substance: APIXABAN
  9. RITUXIMAB [Concomitant]
     Active Substance: RITUXIMAB
  10. VITAMINS [Concomitant]
     Active Substance: VITAMINS

REACTIONS (3)
  - Therapy change [None]
  - Hypertension [None]
  - Chest pain [None]

NARRATIVE: CASE EVENT DATE: 20240302
